FAERS Safety Report 6679077-9 (Version None)
Quarter: 2010Q2

REPORT INFORMATION
  Report Type: 
  Country: None (occurrence: None)
  Receive Date: 20100409
  Receipt Date: 20100408
  Transmission Date: 20101027
  Serious: Yes (Hospitalization)
  Sender: FDA-Public Use
  Company Number: WWISSUE-416

PATIENT

DRUGS (1)
  1. LITHIUM CARBONATE [Suspect]

REACTIONS (1)
  - DRUG LEVEL INCREASED [None]
